FAERS Safety Report 5903874-8 (Version None)
Quarter: 2008Q3

REPORT INFORMATION
  Report Type: 
  Country: None (occurrence: None)
  Receive Date: 20080919
  Receipt Date: 20080606
  Transmission Date: 20090109
  Serious: No
  Sender: FDA-Public Use
  Company Number: US-WYE-H04410108

PATIENT
  Age: 56 Year
  Sex: Female

DRUGS (7)
  1. PRISTIQ (DESVENLAFAXINE SUCCINATE MONOHYDRATE [Suspect]
     Indication: ANXIETY
     Dosage: 50 MG 1X PER 1 DAY, ORAL
     Route: 048
     Dates: start: 20080523, end: 20080524
  2. PRISTIQ (DESVENLAFAXINE SUCCINATE MONOHYDRATE [Suspect]
     Indication: DEPRESSION
     Dosage: 50 MG 1X PER 1 DAY, ORAL
     Route: 048
     Dates: start: 20080523, end: 20080524
  3. EFFEXOR XR [Suspect]
     Indication: DEPRESSION
     Dosage: ^150 MG TAPERING DOSE^, ORAL
     Route: 048
  4. CHANTIX [Concomitant]
  5. ADVAIR DISKUS 100/50 [Concomitant]
  6. LITHIUM CARBONATE [Concomitant]
  7. RISPERDAL CONSTA [Concomitant]

REACTIONS (5)
  - AKATHISIA [None]
  - FEELING JITTERY [None]
  - INSOMNIA [None]
  - PSYCHOMOTOR HYPERACTIVITY [None]
  - RESTLESSNESS [None]
